FAERS Safety Report 6371628-7 (Version None)
Quarter: 2009Q3

REPORT INFORMATION
  Report Type: 
  Country: None (occurrence: None)
  Receive Date: 20090923
  Receipt Date: 20080731
  Transmission Date: 20100115
  Serious: No
  Sender: FDA-Public Use
  Company Number: US-ASTRAZENECA-2008UW13612

PATIENT
  Sex: Male

DRUGS (4)
  1. SEROQUEL [Suspect]
     Indication: INSOMNIA
     Route: 048
  2. XANAX [Concomitant]
  3. OXYCODONE [Concomitant]
  4. NARCOTICS [Concomitant]

REACTIONS (4)
  - DYSARTHRIA [None]
  - FATIGUE [None]
  - FEELING DRUNK [None]
  - SOMNOLENCE [None]
